FAERS Safety Report 21187624 (Version 1)
Quarter: 2022Q3

REPORT INFORMATION
  Report Type: Report from Study
  Country: US (occurrence: US)
  Receive Date: 20220808
  Receipt Date: 20220808
  Transmission Date: 20221027
  Serious: Yes (Other)
  Sender: FDA-Public Use
  Company Number: US-BEH-2022148186

PATIENT
  Age: 63 Year
  Sex: Female

DRUGS (1)
  1. HIZENTRA [Suspect]
     Active Substance: HUMAN IMMUNOGLOBULIN G
     Indication: Primary immunodeficiency syndrome
     Dosage: 60 GRAM, BIW
     Route: 058
     Dates: start: 20220702

REACTIONS (4)
  - Renal impairment [Recovered/Resolved]
  - Fatigue [Recovered/Resolved]
  - Diarrhoea [Unknown]
  - Feeling abnormal [Unknown]

NARRATIVE: CASE EVENT DATE: 20220716
